FAERS Safety Report 13371241 (Version 7)
Quarter: 2018Q1

REPORT INFORMATION
  Report Type: Report from Study
  Country: US (occurrence: US)
  Receive Date: 20170324
  Receipt Date: 20180221
  Transmission Date: 20180508
  Serious: Yes (Death, Hospitalization)
  Sender: FDA-Public Use
  Company Number: US-ACTELION-A-US2017-150683

PATIENT
  Age: 83 Year
  Sex: Female

DRUGS (13)
  1. OPSUMIT [Suspect]
     Active Substance: MACITENTAN
     Dosage: 10 MG, QD
     Route: 048
     Dates: start: 20171205
  2. CARAFATE [Concomitant]
     Active Substance: SUCRALFATE
  3. OPSUMIT [Suspect]
     Active Substance: MACITENTAN
     Indication: PULMONARY ARTERIAL HYPERTENSION
     Dosage: 10 MG, QD
     Route: 048
     Dates: start: 20161117
  4. FERROUS SULFATE. [Concomitant]
     Active Substance: FERROUS SULFATE
  5. UPTRAVI [Suspect]
     Active Substance: SELEXIPAG
     Dosage: 800 MCG, BID
     Route: 048
  6. SPIRIVA [Concomitant]
     Active Substance: TIOTROPIUM BROMIDE MONOHYDRATE
  7. TRAMADOL. [Concomitant]
     Active Substance: TRAMADOL
  8. BUMEX [Concomitant]
     Active Substance: BUMETANIDE
  9. HYDROXYUREA. [Concomitant]
     Active Substance: HYDROXYUREA
  10. UPTRAVI [Suspect]
     Active Substance: SELEXIPAG
     Indication: PULMONARY ARTERIAL HYPERTENSION
     Dosage: 1600 MCG, BID
     Route: 048
     Dates: start: 20170208
  11. UPTRAVI [Suspect]
     Active Substance: SELEXIPAG
     Dosage: 400 MCG, BID
     Route: 048
     Dates: start: 20170208
  12. UPTRAVI [Suspect]
     Active Substance: SELEXIPAG
     Dosage: 1400 MCG, BID
     Route: 048
  13. METOLAZONE. [Concomitant]
     Active Substance: METOLAZONE

REACTIONS (11)
  - Dyspnoea [Unknown]
  - Blood potassium decreased [Not Recovered/Not Resolved]
  - Death [Fatal]
  - Dehydration [Recovered/Resolved]
  - Oedema [Recovered/Resolved]
  - Cardiac failure congestive [Unknown]
  - Electrolyte imbalance [Not Recovered/Not Resolved]
  - Fluid retention [Unknown]
  - Fatigue [Unknown]
  - Somnolence [Unknown]
  - Diarrhoea [Unknown]

NARRATIVE: CASE EVENT DATE: 20170219
